FAERS Safety Report 18866910 (Version 1)
Quarter: 2021Q1

REPORT INFORMATION
  Report Type: Other
  Country: FR (occurrence: FR)
  Receive Date: 20210208
  Receipt Date: 20210208
  Transmission Date: 20210420
  Serious: Yes (Other)
  Sender: FDA-Public Use
  Company Number: FR-CELLTRION INC.-2021FR001050

PATIENT

DRUGS (3)
  1. POLATUZUMAB VEDOTIN. [Suspect]
     Active Substance: POLATUZUMAB VEDOTIN
     Indication: DIFFUSE LARGE B-CELL LYMPHOMA
     Dosage: 1.8 MG/KG (SUBSEQUENT DOSE RECEIVED ON: 06/AUG/2020)
     Route: 042
     Dates: start: 20200717
  2. RITUXIMAB (UNKNOWN) [Suspect]
     Active Substance: RITUXIMAB
     Indication: DIFFUSE LARGE B-CELL LYMPHOMA
     Dosage: 375 MG/M2 (SUBSEQUENT DOSE RECEIVED ON: 06/AUG/2020)
     Route: 042
     Dates: start: 20200716
  3. BENDAMUSTINE [Suspect]
     Active Substance: BENDAMUSTINE
     Indication: DIFFUSE LARGE B-CELL LYMPHOMA
     Dosage: 63 MG/M2 (SUBSEQUENT DOSE RECEIVED ON: 06/AUG/2020)
     Route: 042
     Dates: start: 20200717

REACTIONS (3)
  - Neutrophil count decreased [Unknown]
  - Product use issue [Unknown]
  - Off label use [Unknown]
